FAERS Safety Report 24584563 (Version 1)
Quarter: 2024Q4

REPORT INFORMATION
  Report Type: Spontaneous
  Country: US (occurrence: None)
  Receive Date: 20241105
  Receipt Date: 20241105
  Transmission Date: 20250114
  Serious: No
  Sender: Public
  Company Number: None

PATIENT
  Age: 44 Year
  Sex: Female
  Weight: 46.35 kg

DRUGS (2)
  1. TIRZEPATIDE [Suspect]
     Active Substance: TIRZEPATIDE
  2. BACTERIOSTATIC WATER [Suspect]
     Active Substance: WATER

REACTIONS (2)
  - Vomiting [None]
  - Liquid product physical issue [None]

NARRATIVE: CASE EVENT DATE: 20241101
